FAERS Safety Report 8851395 (Version 1)
Quarter: 2012Q4

REPORT INFORMATION
  Report Type: 
  Country: US (occurrence: US)
  Receive Date: 20121022
  Receipt Date: 20121022
  Transmission Date: 20130627
  Serious: Yes (Death, Hospitalization, Other)
  Sender: FDA-Public Use
  Company Number: US-ROCHE-1132031

PATIENT
  Age: 63 Year
  Sex: Male

DRUGS (2)
  1. XELODA [Suspect]
     Indication: HEPATIC NEOPLASM MALIGNANT
     Route: 048
     Dates: start: 20110221, end: 20110306
  2. TEMODAR [Concomitant]
     Route: 065

REACTIONS (3)
  - Neoplasm progression [Fatal]
  - Hepatic failure [Unknown]
  - Jaundice [Not Recovered/Not Resolved]
